FAERS Safety Report 13646955 (Version 4)
Quarter: 2017Q3

REPORT INFORMATION
  Report Type: Report from Study
  Country: US (occurrence: US)
  Receive Date: 20170613
  Receipt Date: 20170712
  Transmission Date: 20171127
  Serious: Yes (Death, Other)
  Sender: FDA-Public Use
  Company Number: PHEH2017US017845

PATIENT
  Sex: Male

DRUGS (1)
  1. TOBI PODHALER [Suspect]
     Active Substance: TOBRAMYCIN
     Indication: BRONCHIECTASIS
     Dosage: BID (NEBULIZATION)
     Route: 065
     Dates: start: 2016

REACTIONS (4)
  - Product use in unapproved indication [Unknown]
  - Pulseless electrical activity [Fatal]
  - Pulmonary embolism [Unknown]
  - Dyspnoea [Unknown]
